FAERS Safety Report 11972271 (Version 1)
Quarter: 2016Q1

REPORT INFORMATION
  Report Type: Other
  Country: DE (occurrence: DE)
  Receive Date: 20160128
  Receipt Date: 20160128
  Transmission Date: 20160526
  Serious: Yes (Other)
  Sender: FDA-Public Use
  Company Number: DE-MYLANLABS-2016M1002780

PATIENT

DRUGS (7)
  1. BISOPROLOL [Interacting]
     Active Substance: BISOPROLOL
     Dosage: 0.25 DF, QD (DAILY DOSE: 0.25 DF DOSAGE FORM EVERY DAY)
     Dates: start: 20150626
  2. JANUVIA [Interacting]
     Active Substance: SITAGLIPTIN PHOSPHATE
     Dosage: 1 DF, QD (DAILY DOSE: 1 DF DOSAGE FORM EVERY DAY)
     Dates: start: 20150626
  3. ASPIRIN. [Concomitant]
     Active Substance: ASPIRIN
     Dosage: 1 DF, QD (DAILY DOSE: 1 DF DOSAGE FORM EVERY DAY)
     Dates: start: 20141230
  4. PANTOPRAZOL [Concomitant]
     Active Substance: PANTOPRAZOLE SODIUM
     Dosage: 1 DF, QD (DAILY DOSE: 1 DF DOSAGE FORM EVERY DAY)
     Dates: start: 20141010
  5. SIMVASTATIN. [Concomitant]
     Active Substance: SIMVASTATIN
     Dosage: 1 DF, QD (DAILY DOSE: 1 DF DOSAGE FORM EVERY DAY)
     Dates: start: 20141010
  6. METFORMIN [Suspect]
     Active Substance: METFORMIN HYDROCHLORIDE
     Dosage: 1 DF, BID (DAILY DOSE: 2 DF DOSAGE FORM EVERY DAY)
     Dates: start: 20150626
  7. EXFORGE HCT [Concomitant]
     Active Substance: AMLODIPINE BESYLATE\HYDROCHLOROTHIAZIDE\VALSARTAN
     Dosage: 1 DF, QD (DAILY DOSE: 1 DF DOSAGE FORM EVERY DAY)
     Dates: start: 20150109

REACTIONS (15)
  - Blood pressure increased [Unknown]
  - Gingival pain [Unknown]
  - Poor quality sleep [Unknown]
  - Bone loss [Unknown]
  - Gingival hyperplasia [Unknown]
  - Feeling hot [Unknown]
  - Dry mouth [Unknown]
  - Gingival recession [Unknown]
  - Arthralgia [Unknown]
  - Pain in jaw [Unknown]
  - Skin swelling [Unknown]
  - Pruritus [Unknown]
  - Pain in extremity [Unknown]
  - Toothache [Unknown]
  - Eyelid oedema [Unknown]

NARRATIVE: CASE EVENT DATE: 2015
